FAERS Safety Report 8950972 (Version 1)
Quarter: 2012Q4

REPORT INFORMATION
  Report Type: Spontaneous
  Country: US (occurrence: None)
  Receive Date: 20121130
  Receipt Date: 20121130
  Transmission Date: 20130627
  Serious: Yes (Death, Hospitalization)
  Sender: FDA-Public Use
  Company Number: None

PATIENT
  Age: 40 Year
  Sex: Female
  Weight: 59.3 kg

DRUGS (10)
  1. FRESOLIMUMAB [Suspect]
     Indication: SYSTEMIC SCLEROSIS
     Dosage: 5 mg/kg *58.9-294.5 mg
     Dates: start: 20120802
  2. FLAGYL [Concomitant]
  3. PREDNISONE [Concomitant]
  4. METHOTREXATE [Concomitant]
  5. FOLIC ACID [Concomitant]
  6. AMLODIPINE [Concomitant]
  7. LISINOPRIL [Concomitant]
  8. PANTOPRAZOLE [Concomitant]
  9. METRONIDAZOLE [Concomitant]
  10. ALEVE [Concomitant]

REACTIONS (2)
  - Cardiac failure [None]
  - Myocardial fibrosis [None]
